FAERS Safety Report 4844128-0 (Version None)
Quarter: 2005Q4

REPORT INFORMATION
  Report Type: 
  Country: None (occurrence: None)
  Receive Date: 20051202
  Receipt Date: 20050810
  Transmission Date: 20060501
  Serious: Yes (Hospitalization)
  Sender: FDA-Public Use
  Company Number: US-MERCK-0508USA01965

PATIENT
  Age: 64 Year
  Sex: Female
  Weight: 84 kg

DRUGS (10)
  1. VIOXX [Suspect]
     Indication: ARTHRITIS
     Route: 048
     Dates: start: 20020101, end: 20040701
  2. VIOXX [Suspect]
     Indication: GOUT
     Route: 048
     Dates: start: 20020101, end: 20040701
  3. AMBIEN [Concomitant]
     Indication: SLEEP DISORDER
     Route: 065
  4. XANAX [Concomitant]
     Indication: ANXIETY
     Route: 065
  5. ALLOPURINOL [Concomitant]
     Route: 065
  6. CALCIUM CARBONATE [Concomitant]
     Route: 065
  7. CALCITRIOL [Concomitant]
     Route: 065
  8. OMEPRAZOLE [Concomitant]
     Route: 065
  9. ISOSORBIDE [Concomitant]
     Route: 065
  10. ASPIRIN [Concomitant]
     Route: 065
     Dates: start: 19970101

REACTIONS (14)
  - CARDIAC FAILURE CONGESTIVE [None]
  - CARDIOMEGALY [None]
  - CONSTIPATION [None]
  - CONTUSION [None]
  - CORONARY ARTERY DISEASE [None]
  - FALL [None]
  - GALLBLADDER DISORDER [None]
  - HEPATIC ENZYME INCREASED [None]
  - HYPOVOLAEMIA [None]
  - MYOCARDIAL INFARCTION [None]
  - OEDEMA PERIPHERAL [None]
  - PAIN IN EXTREMITY [None]
  - SPINAL FRACTURE [None]
  - VENTRICULAR TACHYCARDIA [None]
